FAERS Safety Report 9246326 (Version 2)
Quarter: 2013Q3

REPORT INFORMATION
  Report Type: Report from Study
  Country: DE (occurrence: DE)
  Receive Date: 20130422
  Receipt Date: 20130724
  Transmission Date: 20140515
  Serious: Yes (Other)
  Sender: FDA-Public Use
  Company Number: DE-ABBOTT-13P-062-1077480-00

PATIENT
  Sex: Female

DRUGS (5)
  1. HUMIRA [Suspect]
     Indication: RHEUMATOID ARTHRITIS
     Route: 058
     Dates: start: 20100902, end: 20130310
  2. ATACAND [Concomitant]
     Indication: PRODUCT USED FOR UNKNOWN INDICATION
  3. L-THYROXIN [Concomitant]
     Indication: PRODUCT USED FOR UNKNOWN INDICATION
  4. CENTROVISION [Concomitant]
     Indication: PRODUCT USED FOR UNKNOWN INDICATION
  5. DUSPATAL [Concomitant]
     Indication: PRODUCT USED FOR UNKNOWN INDICATION

REACTIONS (2)
  - Chalazion [Not Recovered/Not Resolved]
  - Blepharitis [Not Recovered/Not Resolved]
